FAERS Safety Report 8528467-8 (Version None)
Quarter: 2012Q3

REPORT INFORMATION
  Report Type: 
  Country: None (occurrence: None)
  Receive Date: 20120723
  Receipt Date: 20120628
  Transmission Date: 20120928
  Serious: No
  Sender: FDA-Public Use
  Company Number: US-009507513-1207USA000591

PATIENT

DRUGS (7)
  1. INVESTIGATIONAL DRUG (UNSPECIFIED) [Concomitant]
     Indication: HEPATITIS C
     Dosage: 200 MG, QD
     Route: 048
     Dates: start: 20120507, end: 20120604
  2. INVESTIGATIONAL DRUG (UNSPECIFIED) [Concomitant]
     Dosage: 60 DF TOTAL, UNK
     Route: 048
     Dates: start: 20120604, end: 20120622
  3. PEGINTERFERON ALFA-2A [Concomitant]
     Indication: HEPATITIS C
     Route: 058
  4. REBETOL [Suspect]
     Dosage: UNK
  5. GS-5885 [Concomitant]
     Indication: HEPATITIS C
     Dosage: 30 MG, UNK
  6. INVESTIGATIONAL DRUG (UNSPECIFIED) [Concomitant]
     Dosage: 2 DF, QD
     Route: 048
  7. REBETOL [Suspect]
     Indication: HEPATITIS C
     Dosage: 6 DF, QD
     Route: 048

REACTIONS (1)
  - OVERDOSE [None]
